FAERS Safety Report 9742644 (Version 2)
Quarter: 2015Q3

REPORT INFORMATION
  Report Type: Spontaneous
  Country: US (occurrence: US)
  Receive Date: 20131210
  Receipt Date: 20150804
  Transmission Date: 20151125
  Serious: No
  Sender: FDA-Public Use
  Company Number: US-GILEAD-2009-0025204

PATIENT
  Sex: Female
  Weight: 82.55 kg

DRUGS (16)
  1. LETAIRIS [Suspect]
     Active Substance: AMBRISENTAN
     Indication: PULMONARY ARTERIAL HYPERTENSION
     Route: 048
     Dates: start: 20091010
  2. CELEBREX [Concomitant]
     Active Substance: CELECOXIB
  3. LIPITOR [Concomitant]
     Active Substance: ATORVASTATIN CALCIUM
  4. GLYBURIDE. [Concomitant]
     Active Substance: GLYBURIDE
  5. ALBUTEROL. [Concomitant]
     Active Substance: ALBUTEROL
  6. OXYGEN. [Concomitant]
     Active Substance: OXYGEN
  7. LASIX [Concomitant]
     Active Substance: FUROSEMIDE
  8. PREVACID [Concomitant]
     Active Substance: LANSOPRAZOLE
  9. ALTACE [Concomitant]
     Active Substance: RAMIPRIL
  10. ASPIRIN. [Concomitant]
     Active Substance: ASPIRIN
  11. FERROUS SULFATE [Concomitant]
     Active Substance: FERROUS SULFATE\FERROUS SULFATE, DRIED
  12. SYNTHROID [Concomitant]
     Active Substance: LEVOTHYROXINE SODIUM
  13. METFORMIN [Concomitant]
     Active Substance: METFORMIN HYDROCHLORIDE
  14. AVANDIA [Concomitant]
     Active Substance: ROSIGLITAZONE MALEATE
  15. LORTAB [Concomitant]
     Active Substance: ACETAMINOPHEN\HYDROCODONE BITARTRATE
  16. BYETTA [Concomitant]
     Active Substance: EXENATIDE

REACTIONS (1)
  - Peripheral swelling [Unknown]
